FAERS Safety Report 5249585-6 (Version None)
Quarter: 2007Q1

REPORT INFORMATION
  Report Type: 
  Country: None (occurrence: None)
  Receive Date: 20070228
  Receipt Date: 20060327
  Transmission Date: 20070707
  Serious: No
  Sender: FDA-Public Use
  Company Number: US-GLAXOSMITHKLINE-A0599159A

PATIENT
  Age: 52 Year
  Sex: Female

DRUGS (3)
  1. IMITREX [Suspect]
     Indication: MIGRAINE
     Dosage: 25MG AS REQUIRED
     Route: 048
     Dates: start: 20040101
  2. ACTONEL [Concomitant]
  3. ESTRIOL [Concomitant]

REACTIONS (3)
  - DYSPHAGIA [None]
  - HYPERAESTHESIA [None]
  - SOMNOLENCE [None]
